FAERS Safety Report 5807195-3 (Version None)
Quarter: 2008Q3

REPORT INFORMATION
  Report Type: 
  Country: None (occurrence: None)
  Receive Date: 20080711
  Receipt Date: 20080630
  Transmission Date: 20090109
  Serious: Yes (Hospitalization)
  Sender: FDA-Public Use
  Company Number: B0520407A

PATIENT
  Age: 81 Year
  Sex: Male
  Weight: 68 kg

DRUGS (5)
  1. AVANDAMET [Suspect]
     Route: 048
     Dates: start: 20061213
  2. DAONIL [Suspect]
     Indication: DRUG USE FOR UNKNOWN INDICATION
     Route: 048
     Dates: start: 19900101, end: 20080320
  3. METFORMIN HCL [Suspect]
     Indication: DRUG USE FOR UNKNOWN INDICATION
     Route: 048
     Dates: start: 19900101, end: 20080320
  4. RAMIPRIL [Concomitant]
     Indication: DRUG USE FOR UNKNOWN INDICATION
     Route: 065
     Dates: start: 20050101
  5. KARDEGIC [Concomitant]
     Indication: DRUG USE FOR UNKNOWN INDICATION
     Route: 065
     Dates: start: 20050201

REACTIONS (16)
  - CARDIOMEGALY [None]
  - DIABETES MELLITUS INADEQUATE CONTROL [None]
  - HEPATIC PAIN [None]
  - HYPERCAPNIA [None]
  - HYPOXIA [None]
  - NORMOCHROMIC NORMOCYTIC ANAEMIA [None]
  - OEDEMA PERIPHERAL [None]
  - PLEURISY [None]
  - PROSTATIC ADENOMA [None]
  - PULMONARY HYPERTENSION [None]
  - RENAL FAILURE ACUTE [None]
  - RESPIRATORY ACIDOSIS [None]
  - RESPIRATORY FAILURE [None]
  - RIGHT VENTRICULAR FAILURE [None]
  - URINARY RETENTION [None]
  - URINARY TRACT INFECTION [None]
